FAERS Safety Report 21350649 (Version 1)
Quarter: 2022Q3

REPORT INFORMATION
  Report Type: Spontaneous
  Country: US (occurrence: None)
  Receive Date: 20220919
  Receipt Date: 20220919
  Transmission Date: 20221027
  Serious: Yes (Death)
  Sender: FDA-Public Use
  Company Number: None

PATIENT
  Sex: Male
  Weight: 82.8 kg

DRUGS (1)
  1. VRAYLAR [Suspect]
     Active Substance: CARIPRAZINE
     Indication: Mania
     Dosage: OTHER QUANTITY : 21 CAPSULE(S);?FREQUENCY : DAILY;?
     Route: 048

REACTIONS (2)
  - Agonal death struggle [None]
  - Self-medication [None]
